FAERS Safety Report 4869029-3 (Version None)
Quarter: 2005Q4

REPORT INFORMATION
  Report Type: 
  Country: None (occurrence: None)
  Receive Date: 20051223
  Receipt Date: 20051212
  Transmission Date: 20060501
  Serious: Yes (Hospitalization)
  Sender: FDA-Public Use
  Company Number: 2005RR-01325

PATIENT
  Age: 50 Year
  Sex: Female

DRUGS (2)
  1. ACETAMINOPHEN [Suspect]
  2. CLOZARIL [Suspect]
     Indication: SCHIZOPHRENIA
     Dosage: 75 MG, QD, ORAL
     Route: 048
     Dates: start: 20051024

REACTIONS (3)
  - ACTIVATED PARTIAL THROMBOPLASTIN TIME ABNORMAL [None]
  - HEPATOCELLULAR DAMAGE [None]
  - OVERDOSE [None]
